FAERS Safety Report 19764651 (Version 4)
Quarter: 2022Q3

REPORT INFORMATION
  Report Type: Report from Study
  Country: MX (occurrence: MX)
  Receive Date: 20210831
  Receipt Date: 20220726
  Transmission Date: 20221027
  Serious: Yes (Other)
  Sender: FDA-Public Use
  Company Number: NVSC2021MX195922

PATIENT
  Sex: Female
  Weight: 103 kg

DRUGS (3)
  1. GILENYA [Suspect]
     Active Substance: FINGOLIMOD HYDROCHLORIDE
     Indication: Multiple sclerosis
     Dosage: 0.5 MG, QD
     Route: 048
     Dates: start: 201710
  2. GILENYA [Suspect]
     Active Substance: FINGOLIMOD HYDROCHLORIDE
     Dosage: 0.5 MG, QD
     Route: 048
     Dates: start: 202110
  3. INTERFERON [Suspect]
     Active Substance: INTERFERON
     Indication: Multiple sclerosis
     Dosage: 1 DOSAGE FORM (VIAL) EVERY THIRD DAY
     Route: 058
     Dates: start: 2017, end: 202110

REACTIONS (10)
  - Depression [Recovering/Resolving]
  - Somnolence [Recovering/Resolving]
  - Anxiety [Unknown]
  - Mood swings [Not Recovered/Not Resolved]
  - COVID-19 [Recovered/Resolved]
  - Pyrexia [Not Recovered/Not Resolved]
  - Fatigue [Not Recovered/Not Resolved]
  - Headache [Not Recovered/Not Resolved]
  - Pain in extremity [Not Recovered/Not Resolved]
  - Hypertension [Not Recovered/Not Resolved]

NARRATIVE: CASE EVENT DATE: 20170101
